FAERS Safety Report 25961343 (Version 1)
Quarter: 2025Q4

REPORT INFORMATION
  Report Type: Report from Study
  Country: US (occurrence: US)
  Receive Date: 20251027
  Receipt Date: 20251027
  Transmission Date: 20260118
  Serious: Yes (Hospitalization, Other)
  Sender: ABBVIE
  Company Number: US-ABBVIE-6519803

PATIENT
  Age: 28 Year

DRUGS (1)
  1. DIVALPROEX SODIUM [Suspect]
     Active Substance: DIVALPROEX SODIUM
     Indication: Product used for unknown indication
     Route: 048

REACTIONS (11)
  - Hospitalisation [Unknown]
  - Hepatic enzyme increased [Unknown]
  - Gastrointestinal disorder [Unknown]
  - Sexual abuse [Not Recovered/Not Resolved]
  - Myalgia [Unknown]
  - Dyspnoea [Unknown]
  - Rash [Unknown]
  - Muscle twitching [Unknown]
  - Blindness [Unknown]
  - Vomiting projectile [Unknown]
  - Migraine [Unknown]

NARRATIVE: CASE EVENT DATE: 20250301
